FAERS Safety Report 7413427-0 (Version None)
Quarter: 2011Q2

REPORT INFORMATION
  Report Type: 
  Country: None (occurrence: None)
  Receive Date: 20110413
  Receipt Date: 20110408
  Transmission Date: 20111010
  Serious: Yes (Hospitalization)
  Sender: FDA-Public Use
  Company Number: US-ELI_LILLY_AND_COMPANY-US201104003031

PATIENT
  Sex: Male

DRUGS (5)
  1. HUMULIN N [Suspect]
     Dosage: 22 U, EACH MORNING
     Route: 065
  2. HUMULIN N [Suspect]
     Dosage: 18 U, EACH EVENING
     Route: 065
  3. NOVOLOG [Concomitant]
  4. HUMULIN N [Suspect]
     Dosage: 18 U, EACH EVENING
     Route: 065
  5. HUMULIN N [Suspect]
     Indication: TYPE 2 DIABETES MELLITUS
     Dosage: 22 U, EACH MORNING
     Route: 065

REACTIONS (2)
  - BLOOD GLUCOSE DECREASED [None]
  - CARDIAC DISORDER [None]
